FAERS Safety Report 7868092-5 (Version None)
Quarter: 2011Q4

REPORT INFORMATION
  Report Type: 
  Country: None (occurrence: None)
  Receive Date: 20111028
  Receipt Date: 20111024
  Transmission Date: 20120403
  Serious: Yes (Other)
  Sender: FDA-Public Use
  Company Number: US-PFIZER INC-2011260781

PATIENT

DRUGS (1)
  1. GEODON [Suspect]
     Dosage: 60 MG, 2X/DAY

REACTIONS (1)
  - GASTROINTESTINAL TUBE INSERTION [None]
